FAERS Safety Report 9114556 (Version 1)
Quarter: 2013Q1

REPORT INFORMATION
  Report Type: Spontaneous
  Country: US (occurrence: None)
  Receive Date: 20130220
  Receipt Date: 20130220
  Transmission Date: 20140127
  Serious: Yes (Other)
  Sender: FDA-Public Use
  Company Number: None

PATIENT
  Age: 50 Year
  Sex: 0
  Weight: 77.11 kg

DRUGS (2)
  1. LAMOTRIGINE [Suspect]
     Indication: CONVULSION
     Route: 048
     Dates: start: 20130201, end: 20130205
  2. LAMOTRIGINE [Suspect]
     Route: 048

REACTIONS (3)
  - Convulsion [None]
  - Product substitution issue [None]
  - Therapeutic response unexpected with drug substitution [None]
